FAERS Safety Report 4333673-2 (Version None)
Quarter: 2004Q2

REPORT INFORMATION
  Report Type: 
  Country: None (occurrence: None)
  Receive Date: 20040406
  Receipt Date: 20040406
  Transmission Date: 20050107
  Serious: No
  Sender: FDA-Public Use
  Company Number: None

PATIENT
  Age: 48 Year
  Sex: Female
  Weight: 58.9676 kg

DRUGS (2)
  1. PHENYTOIN [Suspect]
     Indication: CONVULSION
     Dosage: 1 GM IV
     Route: 042
     Dates: start: 20040210
  2. FOSPHENYTOIN SODIUM [Suspect]
     Indication: CONVULSION

REACTIONS (1)
  - PHLEBITIS [None]
